FAERS Safety Report 8367850-0 (Version None)
Quarter: 2012Q2

REPORT INFORMATION
  Report Type: 
  Country: None (occurrence: None)
  Receive Date: 20120517
  Receipt Date: 20120514
  Transmission Date: 20120825
  Serious: Yes (Disabling)
  Sender: FDA-Public Use
  Company Number: US-PFIZER INC-2012073682

PATIENT
  Sex: Male

DRUGS (2)
  1. ZOLOFT [Suspect]
     Dosage: 2- 100 MG (200MG DAILY)
  2. EFFEXOR XR [Suspect]
     Dosage: 3- 150MG (450MG DAILY)

REACTIONS (2)
  - BACK INJURY [None]
  - ACCIDENT AT WORK [None]
